FAERS Safety Report 6934735-3 (Version None)
Quarter: 2010Q3

REPORT INFORMATION
  Report Type: 
  Country: None (occurrence: None)
  Receive Date: 20100820
  Receipt Date: 20100812
  Transmission Date: 20110219
  Serious: Yes (Life-Threatening, Other)
  Sender: FDA-Public Use
  Company Number: US-AMGEN-QUU431277

PATIENT
  Sex: Male

DRUGS (2)
  1. NPLATE [Suspect]
     Indication: IDIOPATHIC THROMBOCYTOPENIC PURPURA
     Dates: start: 20090610, end: 20100719
  2. PROMACTA [Concomitant]

REACTIONS (4)
  - ATELECTASIS [None]
  - PNEUMONITIS [None]
  - PULMONARY EMBOLISM [None]
  - PULMONARY THROMBOSIS [None]
